FAERS Safety Report 13893960 (Version 3)
Quarter: 2017Q4

REPORT INFORMATION
  Report Type: Report from Study
  Country: US (occurrence: US)
  Receive Date: 20170822
  Receipt Date: 20171205
  Transmission Date: 20180320
  Serious: Yes (Death, Hospitalization, Other)
  Sender: FDA-Public Use
  Company Number: US-ACTELION-A-NJ2017-158334

PATIENT
  Age: 70 Year
  Sex: Male
  Weight: 110.2 kg

DRUGS (13)
  1. UPTRAVI [Suspect]
     Active Substance: SELEXIPAG
     Dosage: UNK MCG, BID
     Route: 048
     Dates: start: 20170129
  2. SPIRONOLACTONE. [Concomitant]
     Active Substance: SPIRONOLACTONE
     Dosage: UNK
     Dates: start: 20150828
  3. PRAZOSIN. [Concomitant]
     Active Substance: PRAZOSIN
     Dosage: UNK
     Dates: start: 2015
  4. ASPIRIN. [Concomitant]
     Active Substance: ASPIRIN
     Dosage: 325 MG, UNK
     Dates: start: 2015
  5. FUROSEMIDE. [Concomitant]
     Active Substance: FUROSEMIDE
     Dosage: UNK GTT, UNK
     Dates: start: 2015
  6. METOPROLOL SUCCINATE. [Concomitant]
     Active Substance: METOPROLOL SUCCINATE
     Dosage: 25 MG, BID
     Dates: start: 2015
  7. NIFEDICAL XL [Concomitant]
     Active Substance: NIFEDIPINE
     Dosage: UNK
     Dates: start: 2015
  8. ADCIRCA [Concomitant]
     Active Substance: TADALAFIL
     Dosage: UNK
     Dates: start: 20150716
  9. DIGOXIN. [Concomitant]
     Active Substance: DIGOXIN
     Dosage: UNK
     Dates: start: 2015
  10. SIMVASTATIN. [Concomitant]
     Active Substance: SIMVASTATIN
     Dosage: UNK
     Dates: start: 2015
  11. URSODIOL. [Concomitant]
     Active Substance: URSODIOL
     Dosage: UNK
     Dates: start: 2015
  12. UPTRAVI [Suspect]
     Active Substance: SELEXIPAG
     Indication: PULMONARY ARTERIAL HYPERTENSION
     Dosage: 1400 MCG, BID
     Route: 048
     Dates: start: 20170425, end: 20170914
  13. ALLOPURINOL. [Concomitant]
     Active Substance: ALLOPURINOL
     Dosage: UNK
     Dates: start: 2015

REACTIONS (24)
  - Nephrectomy [Unknown]
  - Microembolism [Unknown]
  - Abdominal pain [Unknown]
  - Melaena [Unknown]
  - Dysphagia [Unknown]
  - Retroperitoneal haemorrhage [Unknown]
  - Right ventricular failure [Fatal]
  - Fluid overload [Fatal]
  - Dyspnoea [Unknown]
  - Right ventricular dilatation [Unknown]
  - Transfusion [Unknown]
  - Oral infection [Unknown]
  - Atrial fibrillation [Unknown]
  - Blue toe syndrome [Unknown]
  - Renal cell carcinoma recurrent [Unknown]
  - Pulmonary arterial hypertension [Unknown]
  - Sepsis [Unknown]
  - Pyrexia [Unknown]
  - International normalised ratio abnormal [Unknown]
  - Dehydration [Unknown]
  - Blood pressure systolic [Unknown]
  - Haematoma [Unknown]
  - Acute kidney injury [Unknown]
  - Hypernatraemia [Unknown]

NARRATIVE: CASE EVENT DATE: 20170826
